FAERS Safety Report 24237508 (Version 1)
Quarter: 2024Q3

REPORT INFORMATION
  Report Type: Spontaneous
  Country: US (occurrence: None)
  Receive Date: 20240821
  Receipt Date: 20240821
  Transmission Date: 20241017
  Serious: No
  Sender: Public
  Company Number: None

PATIENT
  Sex: Male

DRUGS (1)
  1. ADVATE [Suspect]
     Active Substance: ANTIHEMOPHILIC FACTOR, HUMAN RECOMBINANT
     Indication: Factor VIII deficiency
     Dosage: OTHER QUANTITY : 2000 UNITS;?FREQUENCY : WEEKLY;?
     Route: 042
     Dates: start: 202308

REACTIONS (3)
  - Mouth haemorrhage [None]
  - Post procedural complication [None]
  - Rectal haemorrhage [None]

NARRATIVE: CASE EVENT DATE: 20240701
